FAERS Safety Report 10657405 (Version 1)
Quarter: 2014Q4

REPORT INFORMATION
  Report Type: Spontaneous
  Country: US (occurrence: US)
  Receive Date: 20141217
  Receipt Date: 20141217
  Transmission Date: 20150529
  Serious: Yes (Hospitalization, Other)
  Sender: FDA-Public Use
  Company Number: PHEH2014US024570

PATIENT
  Age: 53 Year
  Sex: Male

DRUGS (15)
  1. TEKTURNA [Suspect]
     Active Substance: ALISKIREN HEMIFUMARATE
     Indication: PRODUCT USED FOR UNKNOWN INDICATION
     Route: 065
  2. LEXAPRO [Concomitant]
     Active Substance: ESCITALOPRAM OXALATE
     Indication: PRODUCT USED FOR UNKNOWN INDICATION
     Dosage: 10 MG, QD
     Route: 065
  3. TRICOR [Concomitant]
     Active Substance: FENOFIBRATE
     Indication: PRODUCT USED FOR UNKNOWN INDICATION
     Dosage: 145 MG, QD
     Route: 065
  4. VALTURNA [Suspect]
     Active Substance: ALISKIREN HEMIFUMARATE\VALSARTAN
     Indication: PRODUCT USED FOR UNKNOWN INDICATION
     Route: 065
  5. DIOVAN HCT [Suspect]
     Active Substance: HYDROCHLOROTHIAZIDE\VALSARTAN
     Indication: PRODUCT USED FOR UNKNOWN INDICATION
     Dosage: 160/12.5 MG (160 MG VALS AND 12.5 MG HYDR), QD
     Route: 065
  6. ZINC SULFATE [Concomitant]
     Active Substance: ZINC SULFATE\ZINC SULFATE ANHYDROUS
     Indication: PRODUCT USED FOR UNKNOWN INDICATION
     Dosage: 220 MG, BID
     Route: 065
  7. LIPITOR [Concomitant]
     Active Substance: ATORVASTATIN CALCIUM
     Indication: PRODUCT USED FOR UNKNOWN INDICATION
     Dosage: 20 MG
     Route: 065
  8. GLUCOSAMINE [Concomitant]
     Active Substance: GLUCOSAMINE
     Indication: PRODUCT USED FOR UNKNOWN INDICATION
     Route: 065
  9. INSULIN [Concomitant]
     Active Substance: INSULIN NOS
     Indication: PRODUCT USED FOR UNKNOWN INDICATION
     Route: 065
  10. METFORMIN [Concomitant]
     Active Substance: METFORMIN HYDROCHLORIDE
     Indication: PRODUCT USED FOR UNKNOWN INDICATION
     Dosage: 500 MG, BID
     Route: 065
  11. VANCOMYCIN [Concomitant]
     Active Substance: VANCOMYCIN
     Indication: PRODUCT USED FOR UNKNOWN INDICATION
     Route: 065
  12. PENICILLIN G [Concomitant]
     Active Substance: PENICILLIN G
     Indication: PRODUCT USED FOR UNKNOWN INDICATION
     Route: 065
  13. BYETTA [Concomitant]
     Active Substance: EXENATIDE
     Indication: PRODUCT USED FOR UNKNOWN INDICATION
     Dosage: 5 MG, BID
     Route: 065
  14. TOPROL XL [Concomitant]
     Active Substance: METOPROLOL SUCCINATE
     Indication: PRODUCT USED FOR UNKNOWN INDICATION
     Dosage: 200 MG
     Route: 065
  15. ENOXAPARIN [Concomitant]
     Active Substance: ENOXAPARIN
     Indication: PRODUCT USED FOR UNKNOWN INDICATION
     Dosage: 40 MG, BID
     Route: 065

REACTIONS (59)
  - Sepsis [Unknown]
  - Azotaemia [Unknown]
  - Leukocytosis [Unknown]
  - Nasal congestion [Unknown]
  - Cardiomegaly [Unknown]
  - Upper respiratory tract infection [Unknown]
  - Phlebitis superficial [Unknown]
  - Necrotising fasciitis [Unknown]
  - Gangrene [Unknown]
  - Musculoskeletal pain [Unknown]
  - Peripheral swelling [Unknown]
  - Upper-airway cough syndrome [Unknown]
  - Sleep disorder [Unknown]
  - Macular fibrosis [Unknown]
  - Pleural effusion [Unknown]
  - Erythema [Unknown]
  - Fatigue [Unknown]
  - Dry mouth [Unknown]
  - Staphylococcal abscess [Unknown]
  - Coma [Unknown]
  - Diabetic retinopathy [Unknown]
  - Peripheral vascular disorder [Unknown]
  - Hyperhidrosis [Unknown]
  - Neuralgia [Unknown]
  - Senile ankylosing vertebral hyperostosis [Unknown]
  - Phlebitis [Unknown]
  - Acute kidney injury [Unknown]
  - Phantom pain [Unknown]
  - Muscle twitching [Unknown]
  - Oedema peripheral [Unknown]
  - Diabetic neuropathy [Unknown]
  - Chronic kidney disease [Unknown]
  - Hyperlipidaemia [Unknown]
  - Pyrexia [Unknown]
  - Hypoaesthesia [Unknown]
  - Arthritis [Unknown]
  - Hyperkeratosis [Unknown]
  - Hyperparathyroidism secondary [Unknown]
  - Hyperkalaemia [Unknown]
  - Hypertension [Unknown]
  - Skin ulcer [Unknown]
  - Cellulitis [Unknown]
  - Sleep apnoea syndrome [Unknown]
  - Depression [Unknown]
  - Hypolipidaemia [Unknown]
  - Onychomycosis [Unknown]
  - Atelectasis [Unknown]
  - Decreased appetite [Unknown]
  - Rash pruritic [Unknown]
  - Anaemia [Unknown]
  - Hypertriglyceridaemia [Unknown]
  - Pain in extremity [Unknown]
  - Microalbuminuria [Unknown]
  - Cough [Unknown]
  - Streptococcal bacteraemia [Unknown]
  - Septic shock [Unknown]
  - Infection [Unknown]
  - Sinusitis [Unknown]
  - Hypotension [Unknown]

NARRATIVE: CASE EVENT DATE: 2008
